FAERS Safety Report 9176493 (Version 1)
Quarter: 2013Q1

REPORT INFORMATION
  Report Type: Spontaneous
  Country: US (occurrence: None)
  Receive Date: 20130319
  Receipt Date: 20130319
  Transmission Date: 20140127
  Serious: Yes (Hospitalization)
  Sender: FDA-Public Use
  Company Number: B0874976A

PATIENT
  Age: 56 Year
  Sex: Female

DRUGS (4)
  1. MELPHALAN [Suspect]
     Indication: STEM CELL TRANSPLANT
  2. BORTEZOMIB [Concomitant]
  3. THALIDOMIDE [Concomitant]
  4. DEXAMETHASONE [Concomitant]

REACTIONS (8)
  - Stem cell transplant [None]
  - Mucosal inflammation [None]
  - Febrile neutropenia [None]
  - Meningitis enterococcal [None]
  - Enterococcal bacteraemia [None]
  - Thrombocytopenia [None]
  - Cognitive disorder [None]
  - Mental status changes [None]
